FAERS Safety Report 8884747 (Version 1)
Quarter: 2012Q4

REPORT INFORMATION
  Report Type: 
  Country: US (occurrence: US)
  Receive Date: 20121102
  Receipt Date: 20121102
  Transmission Date: 20130627
  Serious: No
  Sender: FDA-Public Use
  Company Number: US-ASTRAZENECA-2012SE27067

PATIENT
  Age: 52 Year
  Sex: Female

DRUGS (5)
  1. OMEPRAZOLE [Suspect]
     Indication: GASTROOESOPHAGEAL REFLUX DISEASE
     Route: 048
     Dates: start: 201202
  2. PLAVIX [Suspect]
     Route: 048
     Dates: start: 201103
  3. LEVOTHYROXINE SODIUM [Concomitant]
  4. VITAMIN A AND D [Concomitant]
  5. VITAMIN C [Concomitant]

REACTIONS (3)
  - Dyspnoea [Unknown]
  - Fatigue [Unknown]
  - Contusion [Unknown]
